FAERS Safety Report 8613527-3 (Version None)
Quarter: 2012Q3

REPORT INFORMATION
  Report Type: 
  Country: None (occurrence: None)
  Receive Date: 20120823
  Receipt Date: 20120807
  Transmission Date: 20120928
  Serious: Yes (Hospitalization)
  Sender: FDA-Public Use
  Company Number: JP-009507513-2012SP027754

PATIENT

DRUGS (12)
  1. NESPO [Concomitant]
     Indication: ANAEMIA
     Dosage: 60 MCG PRN QD
     Dates: end: 20120412
  2. CLOBETASOL PROPIONATE [Concomitant]
     Indication: RASH
     Route: 061
     Dates: end: 20120216
  3. REBETOL [Suspect]
     Dosage: 600 UNK, UNK
     Route: 048
     Dates: start: 20120531, end: 20120712
  4. PEGINTERFERON ALFA-2B [Suspect]
     Indication: HEPATITIS C
     Dosage: 1.5 ?G/KG, QW
     Route: 058
     Dates: start: 20120126, end: 20120712
  5. REBETOL [Suspect]
     Dosage: 400 UNK, UNK
     Route: 048
     Dates: start: 20120426, end: 20120530
  6. REBETOL [Suspect]
     Indication: HEPATITIS C
     Dosage: 600 MG, QD
     Route: 048
     Dates: start: 20120126, end: 20120328
  7. REBETOL [Suspect]
     Dosage: 200 MG, QD
     Route: 048
     Dates: start: 20120329
  8. TELAVIC [Suspect]
     Indication: HEPATITIS C
     Dosage: 2250 MG, QD
     Route: 048
     Dates: start: 20120126, end: 20120128
  9. GASMOTIN [Concomitant]
     Indication: NAUSEA
     Dosage: 15 MG, QD
     Route: 048
     Dates: start: 20120126
  10. TELAVIC [Suspect]
     Dosage: 1500 MG, QD
     Route: 048
     Dates: start: 20120128
  11. ETIZOLAM [Concomitant]
     Indication: MALAISE
     Dosage: 1.5 MG, QD
     Route: 048
  12. CELESTAMINE TAB [Concomitant]
     Indication: RASH
     Dosage: 3 DF, TID
     Route: 048

REACTIONS (1)
  - DECREASED APPETITE [None]
